FAERS Safety Report 7551449-X (Version None)
Quarter: 2011Q2

REPORT INFORMATION
  Report Type: 
  Country: None (occurrence: None)
  Receive Date: 20110616
  Receipt Date: 20110606
  Transmission Date: 20111010
  Serious: Yes (Hospitalization, Other)
  Sender: FDA-Public Use
  Company Number: PHHY2011US37404

PATIENT
  Sex: Male
  Weight: 107.3 kg

DRUGS (6)
  1. PRILOSEC [Concomitant]
     Indication: GASTROOESOPHAGEAL REFLUX DISEASE
     Dosage: 1 DF, BID
     Route: 048
  2. SIMVASTATIN [Concomitant]
     Indication: BLOOD CHOLESTEROL INCREASED
     Dosage: 1 DF, DAILY
     Route: 048
  3. GILENYA [Suspect]
     Indication: RELAPSING-REMITTING MULTIPLE SCLEROSIS
     Dosage: 0.5 MG, QD
     Route: 048
     Dates: start: 20110113
  4. ZANAFLEX [Concomitant]
     Indication: MUSCLE SPASTICITY
     Dosage: 1 DF, BID
     Route: 048
  5. NICARDIPINE HCL [Concomitant]
     Indication: HYPERTENSION
     Dosage: 1 DF, DAILY
     Route: 048
  6. FENTANYL-100 [Concomitant]
     Indication: PAIN
     Dosage: 12.5 MG, ONCE IN THREE DAYS
     Route: 062

REACTIONS (8)
  - VISUAL IMPAIRMENT [None]
  - RETINAL TEAR [None]
  - PARAESTHESIA [None]
  - BLOOD PRESSURE INCREASED [None]
  - HYPOAESTHESIA [None]
  - OEDEMA PERIPHERAL [None]
  - TRANSIENT ISCHAEMIC ATTACK [None]
  - MACULAR DEGENERATION [None]
